FAERS Safety Report 7962990-X (Version None)
Quarter: 2011Q4

REPORT INFORMATION
  Report Type: 
  Country: None (occurrence: None)
  Receive Date: 20111207
  Receipt Date: 20111128
  Transmission Date: 20120403
  Serious: Yes (Hospitalization)
  Sender: FDA-Public Use
  Company Number: US-ASTRAZENECA-2011SE72352

PATIENT
  Age: 44 Year
  Sex: Female

DRUGS (3)
  1. ALBERTAL RESCUE [Concomitant]
  2. SYMBICORT [Suspect]
     Route: 055
  3. ADVAIR DISKUS 100/50 [Concomitant]

REACTIONS (1)
  - DRUG DOSE OMISSION [None]
